FAERS Safety Report 5644733-8 (Version None)
Quarter: 2008Q1

REPORT INFORMATION
  Report Type: 
  Country: None (occurrence: None)
  Receive Date: 20080229
  Receipt Date: 20070626
  Transmission Date: 20080703
  Serious: No
  Sender: FDA-Public Use
  Company Number: A0661118A

PATIENT
  Sex: Male

DRUGS (1)
  1. VALTREX [Suspect]
     Indication: PROPHYLAXIS
     Route: 048

REACTIONS (2)
  - DISORIENTATION [None]
  - HERPES SIMPLEX [None]
